FAERS Safety Report 19877944 (Version 1)
Quarter: 2021Q3

REPORT INFORMATION
  Report Type: Spontaneous
  Country: US (occurrence: US)
  Receive Date: 20210922
  Receipt Date: 20210922
  Transmission Date: 20211014
  Serious: No
  Sender: FDA-Public Use
  Company Number: None

PATIENT

DRUGS (1)
  1. ALDARA [Suspect]
     Active Substance: IMIQUIMOD
     Route: 061

REACTIONS (4)
  - Product dispensing error [None]
  - Incorrect dose administered [None]
  - Transcription medication error [None]
  - Wrong schedule [None]
